FAERS Safety Report 7282720-7 (Version None)
Quarter: 2011Q1

REPORT INFORMATION
  Report Type: 
  Country: None (occurrence: None)
  Receive Date: 20110209
  Receipt Date: 20110127
  Transmission Date: 20110831
  Serious: Yes (Other)
  Sender: FDA-Public Use
  Company Number: FR-BAYER-2010-005246

PATIENT
  Sex: Male
  Weight: 75 kg

DRUGS (2)
  1. NEXAVAR [Suspect]
     Indication: GASTROINTESTINAL CARCINOMA
     Dosage: DAILY DOSE 600 MG
     Route: 048
     Dates: start: 20090801, end: 20100924
  2. RANIBIZUMAB [Concomitant]
     Dosage: 3 DOSES

REACTIONS (1)
  - RETINAL VEIN OCCLUSION [None]
